FAERS Safety Report 9106169 (Version 1)
Quarter: 2013Q1

REPORT INFORMATION
  Report Type: Spontaneous
  Country: TR (occurrence: TR)
  Receive Date: 20130220
  Receipt Date: 20130220
  Transmission Date: 20140127
  Serious: Yes (Death)
  Sender: FDA-Public Use
  Company Number: TR-BAYER-2013-021013

PATIENT
  Sex: Male

DRUGS (1)
  1. CORASPIN [Suspect]

REACTIONS (1)
  - Death [Fatal]
